FAERS Safety Report 6529627-8 (Version None)
Quarter: 2010Q1

REPORT INFORMATION
  Report Type: 
  Country: None (occurrence: None)
  Receive Date: 20100104
  Receipt Date: 20091225
  Transmission Date: 20100710
  Serious: Yes (Other)
  Sender: FDA-Public Use
  Company Number: 2009US002656

PATIENT
  Age: 80 Year
  Sex: Male

DRUGS (8)
  1. AMBISOME [Suspect]
     Indication: FUSARIUM INFECTION
     Dosage: 170 MG, UID/QD, IV NOS
     Route: 042
     Dates: start: 20090602, end: 20090615
  2. SODIUM CHLORIDE [Suspect]
     Dosage: 500 ML, UID/QD, IV DRIP
     Route: 041
  3. CEROCRAL (IFENPRODIL TARTRATE) [Concomitant]
  4. FAMOTIDINE [Concomitant]
  5. MUCOSTA (REBAMIPIDE) [Concomitant]
  6. MAGMITT (MAGNESIUM OXIDE) [Concomitant]
  7. SULFAMETHOXAZOLE AND TRIMETHOPRIM [Concomitant]
  8. VFEND [Concomitant]

REACTIONS (2)
  - CARDIAC FAILURE CONGESTIVE [None]
  - RENAL IMPAIRMENT [None]
